FAERS Safety Report 9366517 (Version 1)
Quarter: 2013Q2

REPORT INFORMATION
  Report Type: Spontaneous
  Country: GB (occurrence: GB)
  Receive Date: 20130625
  Receipt Date: 20130625
  Transmission Date: 20140414
  Serious: Yes (Other)
  Sender: FDA-Public Use
  Company Number: GB-ASTRAZENECA-2013SE46925

PATIENT
  Sex: Female

DRUGS (3)
  1. TENORMIN [Suspect]
     Route: 048
  2. TENORMIN [Suspect]
     Route: 048
  3. LOT OF OTHER MEDICATIONS [Concomitant]

REACTIONS (4)
  - Diabetes mellitus [Unknown]
  - Adverse event [Unknown]
  - Coeliac disease [Unknown]
  - Drug intolerance [Unknown]
